FAERS Safety Report 6621141-4 (Version None)
Quarter: 2010Q1

REPORT INFORMATION
  Report Type: 
  Country: None (occurrence: None)
  Receive Date: 20100309
  Receipt Date: 20100219
  Transmission Date: 20100710
  Serious: No
  Sender: FDA-Public Use
  Company Number: US-BIOGENIDEC-2010BI005663

PATIENT
  Sex: Female

DRUGS (4)
  1. AVONEX [Suspect]
     Indication: MULTIPLE SCLEROSIS
     Route: 030
     Dates: start: 20051001, end: 20060101
  2. AVONEX [Suspect]
     Route: 030
     Dates: start: 20091201, end: 20100101
  3. AVONEX [Suspect]
     Route: 030
     Dates: start: 20100101, end: 20100101
  4. AVONEX [Suspect]
     Route: 030
     Dates: start: 20100205

REACTIONS (4)
  - ALOPECIA [None]
  - FEELING HOT [None]
  - INFLUENZA LIKE ILLNESS [None]
  - LOSS OF CONTROL OF LEGS [None]
